FAERS Safety Report 5194046-6 (Version None)
Quarter: 2006Q4

REPORT INFORMATION
  Report Type: 
  Country: None (occurrence: None)
  Receive Date: 20061228
  Receipt Date: 20061219
  Transmission Date: 20070319
  Serious: Yes (Other)
  Sender: FDA-Public Use
  Company Number: BR-ELI_LILLY_AND_COMPANY-BR200612004039

PATIENT
  Age: 41 Year
  Sex: Female
  Weight: 50 kg

DRUGS (6)
  1. FORTEO [Suspect]
     Indication: HYPOCALCAEMIA
     Dosage: 20 UG, OTHER
     Route: 058
     Dates: start: 20061025
  2. CALCIUM CARBONATE [Concomitant]
     Indication: HYPOCALCAEMIA
     Dosage: 1 G, EVERY 4 HRS
     Route: 048
  3. OMEPRAZOLE [Concomitant]
     Indication: STOMACH DISCOMFORT
     Dosage: 20 MG, DAILY (1/D)
     Route: 048
  4. DRAMIN [Concomitant]
     Indication: VOMITING
     Dosage: UNK, UNKNOWN
     Route: 048
  5. CALCITRIOL [Concomitant]
     Indication: HYPOCALCAEMIA
     Dosage: 0.25 MG, 3/D
     Route: 048
  6. COLECALCIFEROL [Concomitant]
     Indication: HYPOCALCAEMIA
     Dosage: 40000 IU, UNKNOWN
     Route: 065

REACTIONS (2)
  - HYPOCALCAEMIA [None]
  - VOMITING [None]
